FAERS Safety Report 9563476 (Version 1)
Quarter: 2013Q3

REPORT INFORMATION
  Report Type: Spontaneous
  Country: US (occurrence: None)
  Receive Date: 20130926
  Receipt Date: 20130926
  Transmission Date: 20140515
  Serious: No
  Sender: FDA-Public Use
  Company Number: None

PATIENT
  Age: 17 Year
  Sex: Male
  Weight: 72.6 kg

DRUGS (1)
  1. CHLORHEXIDINE [Suspect]
     Indication: PREOPERATIVE CARE
     Dates: start: 20130417, end: 20130417

REACTIONS (1)
  - Rash [None]
